FAERS Safety Report 5776515-0 (Version None)
Quarter: 2008Q2

REPORT INFORMATION
  Report Type: 
  Country: None (occurrence: None)
  Receive Date: 20080616
  Receipt Date: 20071119
  Transmission Date: 20081010
  Serious: Yes (Other)
  Sender: FDA-Public Use
  Company Number: 8028064

PATIENT
  Age: 26 Year
  Sex: Male

DRUGS (4)
  1. NIFEDIPINE [Suspect]
     Indication: HYPERTENSION
     Dosage: 10 MG 3/D PO
     Route: 048
     Dates: start: 19840619, end: 19840625
  2. NIFEDIPINE [Suspect]
     Indication: HYPERTENSION
     Dosage: 30 MG PO
     Route: 048
     Dates: start: 19840804, end: 19840811
  3. CLOPENTHIXOL [Suspect]
     Dosage: 400 MG IM
     Route: 030
     Dates: end: 19840728
  4. CHLORPROMAZINE [Concomitant]

REACTIONS (2)
  - OCULOGYRIC CRISIS [None]
  - SOMNOLENCE [None]
